FAERS Safety Report 15830084 (Version 1)
Quarter: 2019Q1

REPORT INFORMATION
  Report Type: Spontaneous
  Country: PK (occurrence: PK)
  Receive Date: 20190115
  Receipt Date: 20190115
  Transmission Date: 20190417
  Serious: Yes (Death, Hospitalization, Other)
  Sender: FDA-Public Use
  Company Number: PHHY2019PK005398

PATIENT
  Age: 22 Year
  Sex: Female
  Weight: 28.1 kg

DRUGS (7)
  1. BEDAQUILINE [Suspect]
     Active Substance: BEDAQUILINE
     Indication: TUBERCULOSIS
     Dosage: 200 MG, TIW
     Route: 048
  2. LINEZOLID. [Suspect]
     Active Substance: LINEZOLID
     Indication: TUBERCULOSIS
     Dosage: 600 MG, QD
     Route: 048
     Dates: start: 20170922, end: 20181010
  3. BEDAQUILINE [Suspect]
     Active Substance: BEDAQUILINE
     Dosage: 400 MG, QD
     Route: 048
     Dates: start: 20170922
  4. CLOFAZIMINE [Suspect]
     Active Substance: CLOFAZIMINE
     Indication: TUBERCULOSIS
     Dosage: 100 MG, QD
     Route: 048
     Dates: start: 20170922
  5. MOXIFLOXACIN. [Suspect]
     Active Substance: MOXIFLOXACIN
     Indication: TUBERCULOSIS
     Dosage: 400 MG, QD
     Route: 048
     Dates: start: 20170922
  6. PYRAZINAMIDE. [Suspect]
     Active Substance: PYRAZINAMIDE
     Indication: TUBERCULOSIS
     Route: 048
  7. VITAMIN B6 [Concomitant]
     Active Substance: PYRIDOXINE HYDROCHLORIDE
     Indication: PRODUCT USED FOR UNKNOWN INDICATION
     Dosage: UNK
     Route: 065
     Dates: start: 20170603

REACTIONS (10)
  - White blood cell count increased [Recovered/Resolved]
  - Vomiting [Unknown]
  - Platelet count decreased [Recovered/Resolved]
  - Decreased appetite [Unknown]
  - Myocardial infarction [Fatal]
  - Aspartate aminotransferase increased [Recovered/Resolved]
  - Paraesthesia [Unknown]
  - Dyspnoea [Fatal]
  - Alanine aminotransferase increased [Recovered/Resolved]
  - Tuberculosis [Fatal]

NARRATIVE: CASE EVENT DATE: 20171122
